FAERS Safety Report 24841022 (Version 1)
Quarter: 2025Q1

REPORT INFORMATION
  Report Type: Spontaneous
  Country: IN (occurrence: IN)
  Receive Date: 20250114
  Receipt Date: 20250114
  Transmission Date: 20250408
  Serious: Yes (Death)
  Sender: PFIZER
  Company Number: IN-PFIZER INC-PV202400156155

PATIENT
  Age: 64 Year
  Sex: Female

DRUGS (1)
  1. DACOMITINIB [Suspect]
     Active Substance: DACOMITINIB
     Indication: Non-small cell lung cancer metastatic
     Dosage: 30 MG, OD (ONCE A DAY)
     Route: 048
     Dates: start: 20240930

REACTIONS (2)
  - Pelvic fracture [Fatal]
  - Fall [Fatal]

NARRATIVE: CASE EVENT DATE: 20241222
